FAERS Safety Report 19377314 (Version 1)
Quarter: 2021Q2

REPORT INFORMATION
  Report Type: Spontaneous
  Country: GB (occurrence: GB)
  Receive Date: 20210605
  Receipt Date: 20210605
  Transmission Date: 20210717
  Serious: Yes (Hospitalization, Other)
  Sender: FDA-Public Use
  Company Number: GB-TEVA-2021-GB-1918577

PATIENT
  Age: 44 Year
  Sex: Female
  Weight: 75 kg

DRUGS (9)
  1. AVAMYS [Concomitant]
     Active Substance: FLUTICASONE FUROATE
     Indication: HYPERSENSITIVITY
     Dates: start: 20100101
  2. BENADRYL ALLERGY RELIEF [Concomitant]
     Indication: IMMUNISATION
  3. FLUTIFORM [Concomitant]
     Active Substance: FLUTICASONE PROPIONATE\FORMOTEROL FUMARATE
     Indication: ASTHMA
     Dates: start: 20210201
  4. ASPIRIN. [Concomitant]
     Active Substance: ASPIRIN
  5. LORATADIN [Concomitant]
     Active Substance: LORATADINE
     Indication: MULTIPLE ALLERGIES
     Dates: start: 20100101
  6. BECLOMETHASONE [Suspect]
     Active Substance: BECLOMETHASONE
     Indication: IMMUNISATION
     Route: 065
  7. SOOLANTRA [Concomitant]
     Active Substance: IVERMECTIN
     Indication: ROSACEA
     Dates: start: 20190101
  8. HRI WATER BALANCE [Concomitant]
  9. SALAMOL [Concomitant]
     Active Substance: ALBUTEROL
     Indication: ASTHMA
     Dates: start: 19950101

REACTIONS (17)
  - Headache [Recovered/Resolved]
  - Dry mouth [Recovered/Resolved]
  - Vomiting [Unknown]
  - Muscle spasms [Recovering/Resolving]
  - Cough [Unknown]
  - Dry throat [Unknown]
  - Throat tightness [Recovered/Resolved]
  - Swelling face [Unknown]
  - Pharyngeal swelling [Unknown]
  - Fatigue [Recovering/Resolving]
  - Dizziness [Unknown]
  - Head discomfort [Unknown]
  - Tremor [Unknown]
  - Oropharyngeal discomfort [Unknown]
  - Dyspnoea [Recovered/Resolved]
  - Pain in extremity [Recovered/Resolved]
  - Nausea [Unknown]

NARRATIVE: CASE EVENT DATE: 20210210
